FAERS Safety Report 4711064-X (Version None)
Quarter: 2005Q3

REPORT INFORMATION
  Report Type: 
  Country: None (occurrence: None)
  Receive Date: 20050708
  Receipt Date: 20050628
  Transmission Date: 20060218
  Serious: Yes (Disabling, Other)
  Sender: FDA-Public Use
  Company Number: 000710-SK913

PATIENT
  Age: 34 Year
  Sex: Female

DRUGS (2)
  1. CELEBREX [Suspect]
     Indication: RHEUMATOID ARTHRITIS
     Dosage: 200 MG (1 D), ORAL
     Route: 048
  2. MEDROL [Suspect]
     Indication: RHEUMATOID ARTHRITIS
     Dosage: ORAL
     Route: 048

REACTIONS (2)
  - FACIAL PALSY [None]
  - HYPERTENSION [None]
